FAERS Safety Report 16832463 (Version 1)
Quarter: 2019Q3

REPORT INFORMATION
  Report Type: Spontaneous
  Country: US (occurrence: US)
  Receive Date: 20190920
  Receipt Date: 20190920
  Transmission Date: 20191005
  Serious: No
  Sender: FDA-Public Use
  Company Number: US-BRAINTREE LABORATORIES-180367-1

PATIENT
  Age: 65 Year
  Sex: Female
  Weight: 46.72 kg

DRUGS (1)
  1. SUPREP BOWEL PREP [Suspect]
     Active Substance: MAGNESIUM SULFATE\POTASSIUM SULFATE\SODIUM SULFATE
     Indication: COLONOSCOPY
     Dosage: {1.5X6 OZ.BOTTLE
     Route: 048
     Dates: start: 20180713, end: 20180714

REACTIONS (8)
  - Drug ineffective [None]
  - Fatigue [None]
  - Dehydration [None]
  - Tremor [None]
  - Fear [None]
  - Underdose [None]
  - Palpitations [None]
  - Stress [None]

NARRATIVE: CASE EVENT DATE: 20180713
